FAERS Safety Report 5806102-7 (Version None)
Quarter: 2008Q3

REPORT INFORMATION
  Report Type: 
  Country: None (occurrence: None)
  Receive Date: 20080709
  Receipt Date: 20080709
  Transmission Date: 20090109
  Serious: Yes (Death)
  Sender: FDA-Public Use
  Company Number: None

PATIENT
  Age: 60 Year
  Sex: Male
  Weight: 135 kg

DRUGS (1)
  1. WARFARIN SODIUM [Suspect]
     Indication: DEEP VEIN THROMBOSIS
     Dosage: 14 MG QWEEK PO
     Route: 048
     Dates: start: 20080122, end: 20080301

REACTIONS (6)
  - CHRONIC HEPATIC FAILURE [None]
  - DIABETES MELLITUS [None]
  - INTERNATIONAL NORMALISED RATIO ABNORMAL [None]
  - INTERNATIONAL NORMALISED RATIO INCREASED [None]
  - RENAL FAILURE ACUTE [None]
  - SEPTIC SHOCK [None]
